FAERS Safety Report 8511533-0 (Version None)
Quarter: 2012Q3

REPORT INFORMATION
  Report Type: 
  Country: None (occurrence: None)
  Receive Date: 20120710
  Receipt Date: 20120710
  Transmission Date: 20120928
  Serious: No
  Sender: FDA-Public Use
  Company Number: None

PATIENT
  Age: 28 Year
  Sex: Female
  Weight: 69.4003 kg

DRUGS (1)
  1. RESTASIS [Suspect]
     Dosage: 5-6 TIMES PER DAY
     Dates: start: 20120701, end: 20120706

REACTIONS (1)
  - HEADACHE [None]
